FAERS Safety Report 6523317-3 (Version None)
Quarter: 2009Q4

REPORT INFORMATION
  Report Type: 
  Country: None (occurrence: None)
  Receive Date: 20091231
  Receipt Date: 20091222
  Transmission Date: 20100525
  Serious: Yes (Other)
  Sender: FDA-Public Use
  Company Number: US-JNJFOC-20090609014

PATIENT
  Sex: Female

DRUGS (8)
  1. BLINDED; INFLIXIMAB, RECOMBINANT [Suspect]
     Route: 050
  2. BLINDED; INFLIXIMAB, RECOMBINANT [Suspect]
     Indication: DRUG EXPOSURE DURING PREGNANCY
     Route: 050
  3. PLACEBO [Suspect]
     Route: 050
  4. PLACEBO [Suspect]
     Indication: DRUG EXPOSURE DURING PREGNANCY
     Route: 050
  5. PEG-INTRON [Concomitant]
     Route: 050
  6. PEG-INTRON [Concomitant]
     Indication: DRUG EXPOSURE DURING PREGNANCY
     Route: 050
  7. REBETOL [Concomitant]
     Route: 050
  8. REBETOL [Concomitant]
     Indication: DRUG EXPOSURE DURING PREGNANCY
     Route: 050

REACTIONS (1)
  - DRUG EXPOSURE BEFORE PREGNANCY [None]
